FAERS Safety Report 8619248-5 (Version None)
Quarter: 2012Q3

REPORT INFORMATION
  Report Type: 
  Country: None (occurrence: None)
  Receive Date: 20120824
  Receipt Date: 20120725
  Transmission Date: 20120928
  Serious: No
  Sender: FDA-Public Use
  Company Number: US-009507513-1208USA000178

PATIENT

DRUGS (1)
  1. TEMODAR [Suspect]
     Dosage: 2300 MG, ONCE
     Route: 048
     Dates: start: 20120724, end: 20120724

REACTIONS (2)
  - NO ADVERSE EVENT [None]
  - OVERDOSE [None]
